FAERS Safety Report 8201216-9 (Version None)
Quarter: 2012Q1

REPORT INFORMATION
  Report Type: 
  Country: None (occurrence: None)
  Receive Date: 20120312
  Receipt Date: 20120305
  Transmission Date: 20120608
  Serious: Yes (Death, Other)
  Sender: FDA-Public Use
  Company Number: PHHY2012JP019511

PATIENT
  Age: 55 Year
  Sex: Male

DRUGS (2)
  1. CORTICOSTEROIDS [Concomitant]
  2. CYCLOSPORINE [Suspect]
     Indication: CORD BLOOD TRANSPLANT THERAPY

REACTIONS (4)
  - POST TRANSPLANT LYMPHOPROLIFERATIVE DISORDER [None]
  - CIRCULATORY COLLAPSE [None]
  - RESPIRATORY FAILURE [None]
  - PNEUMONIA ASPIRATION [None]
